FAERS Safety Report 16893770 (Version 1)
Quarter: 2019Q4

REPORT INFORMATION
  Report Type: Spontaneous
  Country: US (occurrence: US)
  Receive Date: 20191008
  Receipt Date: 20191008
  Transmission Date: 20200122
  Serious: Yes (Other)
  Sender: FDA-Public Use
  Company Number: US-PFIZER INC-2019428570

PATIENT
  Age: 61 Year
  Sex: Female
  Weight: 59.87 kg

DRUGS (1)
  1. PREMARIN [Suspect]
     Active Substance: ESTROGENS, CONJUGATED
     Indication: HOT FLUSH
     Dosage: 0.45 MG, 1X/DAY
     Route: 048

REACTIONS (5)
  - Hot flush [Not Recovered/Not Resolved]
  - Condition aggravated [Unknown]
  - Product dose omission [Unknown]
  - Irritability [Unknown]
  - Loss of personal independence in daily activities [Unknown]

NARRATIVE: CASE EVENT DATE: 201909
